FAERS Safety Report 14147784 (Version 1)
Quarter: 2017Q4

REPORT INFORMATION
  Report Type: Spontaneous
  Country: US (occurrence: US)
  Receive Date: 20171031
  Receipt Date: 20171031
  Transmission Date: 20180321
  Serious: Yes (Life-Threatening)
  Sender: FDA-Public Use
  Company Number: US-BAUSCH-2002BL004036

PATIENT
  Age: 49 Year
  Sex: Female

DRUGS (2)
  1. FLUORESCEIN SODIUM AND BENOXINATE HYDROCHLORIDE OPHTHALMIC SOLUTION US [Suspect]
     Active Substance: BENOXINATE HYDROCHLORIDE\FLUORESCEIN SODIUM
     Indication: OPHTHALMOLOGICAL EXAMINATION
     Route: 047
     Dates: start: 20020710, end: 20020710
  2. TROPICAMIDE OPHTHALMIC SOLUTION USP 0.5% [Suspect]
     Active Substance: TROPICAMIDE
     Indication: OPHTHALMOLOGICAL EXAMINATION
     Route: 047
     Dates: start: 20020710, end: 20020710

REACTIONS (8)
  - Throat tightness [Recovered/Resolved]
  - Dysphagia [Recovered/Resolved]
  - Chest discomfort [Recovered/Resolved]
  - Anaphylactic reaction [Recovered/Resolved]
  - Swelling face [Recovered/Resolved]
  - Cough [Recovered/Resolved]
  - Dyspnoea [Recovered/Resolved]
  - Eye swelling [Recovered/Resolved]

NARRATIVE: CASE EVENT DATE: 20020710
